FAERS Safety Report 22841413 (Version 2)
Quarter: 2024Q2

REPORT INFORMATION
  Report Type: Report from Study
  Country: GB (occurrence: GB)
  Receive Date: 20230820
  Receipt Date: 20240402
  Transmission Date: 20240715
  Serious: Yes (Other)
  Sender: FDA-Public Use
  Company Number: GB-CELLTRION INC.-2023GB016404

PATIENT

DRUGS (2)
  1. ADALIMUMAB [Suspect]
     Active Substance: ADALIMUMAB\ISOPROPYL ALCOHOL
     Indication: Product used for unknown indication
     Dosage: UNK
     Route: 050
     Dates: end: 202306
  2. SKYRIZI [Suspect]
     Active Substance: RISANKIZUMAB-RZAA
     Indication: Psoriasis
     Dosage: 150 MG, EVERY 28 DAYS (FORM STRENGTH: 150 MILLIGRAM WEEK-0)
     Route: 050
     Dates: start: 20230809, end: 20230809

REACTIONS (3)
  - Benign ear neoplasm [Unknown]
  - Tearfulness [Unknown]
  - Psoriasis [Not Recovered/Not Resolved]
